FAERS Safety Report 4752930-9 (Version None)
Quarter: 2005Q3

REPORT INFORMATION
  Report Type: 
  Country: None (occurrence: None)
  Receive Date: 20050823
  Receipt Date: 20050124
  Transmission Date: 20060218
  Serious: Yes (Other)
  Sender: FDA-Public Use
  Company Number: 16281

PATIENT
  Sex: Female

DRUGS (1)
  1. ETOPOSIDE [Suspect]

REACTIONS (2)
  - HEADACHE [None]
  - RESPIRATORY DISORDER [None]
